FAERS Safety Report 16576632 (Version 2)
Quarter: 2019Q3

REPORT INFORMATION
  Report Type: Spontaneous
  Country: JP (occurrence: JP)
  Receive Date: 20190716
  Receipt Date: 20190722
  Transmission Date: 20191004
  Serious: Yes (Hospitalization, Other)
  Sender: FDA-Public Use
  Company Number: JP-SAKK-2019SA185993AA

PATIENT
  Age: 55 Year
  Sex: Male

DRUGS (1)
  1. DOCETAXEL. [Suspect]
     Active Substance: DOCETAXEL
     Indication: PROSTATE CANCER
     Route: 041

REACTIONS (10)
  - Endocarditis [Unknown]
  - Pyrexia [Unknown]
  - Aphasia [Unknown]
  - Diplegia [Unknown]
  - Cardiac valve vegetation [Unknown]
  - Febrile neutropenia [Unknown]
  - Renal infarct [Unknown]
  - Cerebral artery occlusion [Unknown]
  - Neutropenia [Unknown]
  - Cerebral infarction [Unknown]
